FAERS Safety Report 5615057-X (Version None)
Quarter: 2008Q1

REPORT INFORMATION
  Report Type: 
  Country: None (occurrence: None)
  Receive Date: 20080206
  Receipt Date: 20080201
  Transmission Date: 20080703
  Serious: Yes (Hospitalization)
  Sender: FDA-Public Use
  Company Number: US-ALLERGAN-0801289US

PATIENT
  Sex: Male

DRUGS (3)
  1. BOTOX [Suspect]
     Indication: MUSCLE SPASTICITY
     Dosage: 400 UNITS, SINGLE
     Route: 030
     Dates: start: 20020109, end: 20020109
  2. BOTOX [Suspect]
     Indication: MUSCLE CONTRACTIONS INVOLUNTARY
  3. DILANTIN [Suspect]
     Indication: CONVULSION
     Dosage: 300 MG, QHS
     Route: 048
     Dates: end: 20020119

REACTIONS (2)
  - CONVULSION [None]
  - RASH [None]
